FAERS Safety Report 16306891 (Version 3)
Quarter: 2020Q1

REPORT INFORMATION
  Report Type: Report from Study
  Country: US (occurrence: US)
  Receive Date: 20190513
  Receipt Date: 20200206
  Transmission Date: 20200409
  Serious: Yes (Hospitalization)
  Sender: FDA-Public Use
  Company Number: US-ACTELION-A-NJ2018-182099

PATIENT
  Age: 10 Year
  Sex: Male

DRUGS (3)
  1. TRACLEER [Suspect]
     Active Substance: BOSENTAN
     Indication: PULMONARY ARTERIAL HYPERTENSION
     Dosage: 31.25 MG, BID
     Route: 048
  2. ADCIRCA [Concomitant]
     Active Substance: TADALAFIL
  3. TRACLEER [Suspect]
     Active Substance: BOSENTAN
     Dosage: 62.5 MG, BID
     Route: 048

REACTIONS (6)
  - Pyrexia [Unknown]
  - Pulmonary arterial hypertension [Unknown]
  - Blood alkaline phosphatase increased [Recovered/Resolved]
  - Catheterisation cardiac [Unknown]
  - Liver function test increased [Unknown]
  - Pneumonia [Unknown]

NARRATIVE: CASE EVENT DATE: 201906
